FAERS Safety Report 19210647 (Version 1)
Quarter: 2021Q2

REPORT INFORMATION
  Report Type: Spontaneous
  Country: US (occurrence: US)
  Receive Date: 20210504
  Receipt Date: 20210504
  Transmission Date: 20210717
  Serious: No
  Sender: FDA-Public Use
  Company Number: US-BAYER-2021-134980

PATIENT
  Age: 77 Year
  Sex: Male

DRUGS (1)
  1. MIRALAX [Suspect]
     Active Substance: POLYETHYLENE GLYCOL 3350
     Indication: FAECES SOFT
     Dosage: USED AS RECOMMENDED ON THE DIRECTIONS
     Route: 048
     Dates: start: 202104, end: 20210503

REACTIONS (3)
  - Flatulence [Unknown]
  - Incorrect product administration duration [Unknown]
  - Product use in unapproved indication [Unknown]
